FAERS Safety Report 7862001-0 (Version None)
Quarter: 2011Q4

REPORT INFORMATION
  Report Type: 
  Country: None (occurrence: None)
  Receive Date: 20111027
  Receipt Date: 20111016
  Transmission Date: 20120403
  Serious: Yes (Other)
  Sender: FDA-Public Use
  Company Number: BR-ALLERGAN-1113642US

PATIENT
  Age: 59 Year
  Sex: Female

DRUGS (1)
  1. ZYPRED [Suspect]
     Indication: POSTOPERATIVE CARE
     Dosage: 1 GTT, Q1HR
     Dates: start: 20110718, end: 20110727

REACTIONS (2)
  - CORNEAL INFILTRATES [None]
  - CORNEAL OPACITY [None]
